FAERS Safety Report 4939927-0 (Version None)
Quarter: 2006Q1

REPORT INFORMATION
  Report Type: 
  Country: None (occurrence: None)
  Receive Date: 20060310
  Receipt Date: 20060219
  Transmission Date: 20060701
  Serious: Yes (Life-Threatening, Hospitalization)
  Sender: FDA-Public Use
  Company Number: GR-GLAXOSMITHKLINE-B0413168A

PATIENT
  Age: 42 Year
  Sex: Female

DRUGS (4)
  1. TIMENTIN [Suspect]
     Indication: ABDOMINAL ABSCESS
     Dosage: 3.2G THREE TIMES PER DAY
     Route: 042
     Dates: start: 20060215, end: 20060219
  2. ZANTAC [Concomitant]
  3. FLAGYL [Concomitant]
  4. AMINOGLYCOSIDE [Concomitant]

REACTIONS (3)
  - ABDOMINAL MASS [None]
  - LEUKOPENIA [None]
  - THROMBOCYTOPENIA [None]
